FAERS Safety Report 12307802 (Version 1)
Quarter: 2016Q2

REPORT INFORMATION
  Report Type: Spontaneous
  Country: US (occurrence: US)
  Receive Date: 20160426
  Receipt Date: 20160426
  Transmission Date: 20160815
  Serious: No
  Sender: FDA-Public Use
  Company Number: US-ALKERMES INC.-ALK-2015-001543

PATIENT

DRUGS (2)
  1. VIVITROL [Suspect]
     Active Substance: NALTREXONE
     Indication: DRUG DEPENDENCE
     Dosage: 380 MG, QMO
     Route: 030
     Dates: start: 201508, end: 201508
  2. VIVITROL [Suspect]
     Active Substance: NALTREXONE
     Dosage: 380 MG, QMO
     Route: 030
     Dates: start: 20151123

REACTIONS (11)
  - Heart rate increased [Unknown]
  - Blood pressure increased [Unknown]
  - Decreased appetite [Unknown]
  - Drug dependence [Unknown]
  - Inappropriate schedule of drug administration [Recovered/Resolved]
  - Influenza like illness [Unknown]
  - Depression [Unknown]
  - Drug abuse [Unknown]
  - Suicidal ideation [Unknown]
  - Social avoidant behaviour [Unknown]
  - Crying [Unknown]

NARRATIVE: CASE EVENT DATE: 2015
